FAERS Safety Report 6520970-5 (Version None)
Quarter: 2009Q4

REPORT INFORMATION
  Report Type: 
  Country: None (occurrence: None)
  Receive Date: 20091229
  Receipt Date: 20091223
  Transmission Date: 20100525
  Serious: Yes (Other)
  Sender: FDA-Public Use
  Company Number: DE-AMGEN-QUU373015

PATIENT
  Sex: Male
  Weight: 70.5 kg

DRUGS (16)
  1. ARANESP [Suspect]
     Indication: RENAL FAILURE CHRONIC
     Route: 042
     Dates: start: 20081120, end: 20090722
  2. L-THYROXIN [Concomitant]
     Route: 048
     Dates: start: 20090318
  3. PANTOPRAZOLE [Concomitant]
     Route: 048
     Dates: start: 20090803
  4. METOPROLOL TARTRATE [Concomitant]
     Route: 048
     Dates: start: 20091002
  5. SIMVASTATIN [Concomitant]
     Route: 048
     Dates: start: 20090318
  6. ALLOPURINOL [Concomitant]
     Route: 048
     Dates: start: 20090318
  7. VOTUM [Concomitant]
     Route: 048
     Dates: start: 20091002
  8. CALCIUM [Concomitant]
     Route: 048
     Dates: start: 20091104
  9. RENAGEL [Concomitant]
     Route: 048
     Dates: start: 20091107
  10. COTRIM [Concomitant]
     Route: 048
     Dates: start: 20090318
  11. AMLODIPINE [Concomitant]
     Route: 048
     Dates: start: 20091007
  12. ANTI-PHOSPHAT [Concomitant]
     Route: 048
     Dates: start: 20091104
  13. CALCIUM POLYSTYRENE SULFONATE [Concomitant]
     Route: 048
     Dates: start: 20091104
  14. TACROLIMUS [Concomitant]
  15. CERTICAN [Concomitant]
     Dates: start: 20080109
  16. URBASON [Concomitant]
     Dates: start: 20080109

REACTIONS (5)
  - C-REACTIVE PROTEIN INCREASED [None]
  - DRUG INEFFECTIVE [None]
  - GASTRITIS [None]
  - HAEMOGLOBIN DECREASED [None]
  - TRANSPLANT FAILURE [None]
